FAERS Safety Report 9209250 (Version 2)
Quarter: 2013Q2

REPORT INFORMATION
  Report Type: Spontaneous
  Country: IT (occurrence: IT)
  Receive Date: 20130404
  Receipt Date: 20130404
  Transmission Date: 20140414
  Serious: Yes (Other)
  Sender: FDA-Public Use
  Company Number: IT-JNJFOC-20130316828

PATIENT
  Age: 35 Year
  Sex: Female

DRUGS (3)
  1. GOLIMUMAB [Suspect]
     Indication: UVEITIS
     Route: 058
     Dates: start: 201103, end: 201203
  2. PREDNISOLONE [Concomitant]
     Route: 065
  3. PREDNISOLONE [Concomitant]
     Route: 065

REACTIONS (5)
  - Drug ineffective for unapproved indication [Not Recovered/Not Resolved]
  - Cataract [Unknown]
  - Macular oedema [Unknown]
  - Blindness [Not Recovered/Not Resolved]
  - Off label use [Unknown]
